FAERS Safety Report 9892819 (Version 2)
Quarter: 2015Q1

REPORT INFORMATION
  Report Type: Report from Study
  Country: US (occurrence: US)
  Receive Date: 20140213
  Receipt Date: 20150317
  Transmission Date: 20150721
  Serious: Yes (Death)
  Sender: FDA-Public Use
  Company Number: US-ROCHE-1318411

PATIENT
  Age: 66 Year
  Sex: Female
  Weight: 58.11 kg

DRUGS (8)
  1. AVASTIN [Suspect]
     Active Substance: BEVACIZUMAB
     Indication: OVARIAN CANCER
     Dosage: 15 MG/KG
     Route: 042
     Dates: start: 20111031
  2. AVASTIN [Suspect]
     Active Substance: BEVACIZUMAB
     Dosage: 15 MG/KG
     Route: 042
     Dates: start: 20111212
  3. AVASTIN [Suspect]
     Active Substance: BEVACIZUMAB
     Dosage: 15 MG/KG
     Route: 042
     Dates: start: 20120103
  4. AVASTIN [Suspect]
     Active Substance: BEVACIZUMAB
     Dosage: 15 MG/KG
     Route: 042
     Dates: start: 20111121
  5. PANTOPRAZOLE [Concomitant]
     Active Substance: PANTOPRAZOLE SODIUM
     Indication: GASTROOESOPHAGEAL REFLUX DISEASE
     Route: 048
  6. CARAFATE [Concomitant]
     Active Substance: SUCRALFATE
     Indication: BARRETT^S OESOPHAGUS
     Route: 048
  7. LORAZEPAM. [Concomitant]
     Active Substance: LORAZEPAM
     Indication: ANXIETY
     Route: 048
  8. LORTAB [Concomitant]
     Active Substance: ACETAMINOPHEN\HYDROCODONE BITARTRATE
     Indication: PAIN
     Route: 065

REACTIONS (9)
  - Small intestinal obstruction [Fatal]
  - Abdominal distension [Unknown]
  - Decreased appetite [Unknown]
  - Abdominal pain upper [Unknown]
  - Fatigue [Unknown]
  - Intestinal perforation [Fatal]
  - Hypophagia [Unknown]
  - Nausea [Unknown]
  - Abdominal pain [Unknown]

NARRATIVE: CASE EVENT DATE: 20120112
